FAERS Safety Report 6232346-9 (Version None)
Quarter: 2009Q2

REPORT INFORMATION
  Report Type: 
  Country: None (occurrence: None)
  Receive Date: 20090617
  Receipt Date: 20090605
  Transmission Date: 20091009
  Serious: Yes (Other)
  Sender: FDA-Public Use
  Company Number: AR-PFIZER INC-2009210523

PATIENT
  Age: 77 Year

DRUGS (1)
  1. SUTENT [Suspect]
     Indication: RENAL CANCER
     Dosage: 50 MG, 1X/DAY 4/2 SCHEME
     Route: 048
     Dates: start: 20080101

REACTIONS (7)
  - CARDIOVASCULAR INSUFFICIENCY [None]
  - DIARRHOEA [None]
  - DIZZINESS [None]
  - HEADACHE [None]
  - HYPOACUSIS [None]
  - PROTEINURIA [None]
  - THROMBOCYTOPENIA [None]
